FAERS Safety Report 21393241 (Version 2)
Quarter: 2022Q4

REPORT INFORMATION
  Report Type: Report from Study
  Country: GB (occurrence: GB)
  Receive Date: 20220929
  Receipt Date: 20221101
  Transmission Date: 20230113
  Serious: Yes (Hospitalization, Disabling, Other)
  Sender: FDA-Public Use
  Company Number: GB-BRISTOL-MYERS SQUIBB COMPANY-2022-113460

PATIENT
  Age: 54 Year
  Sex: Female

DRUGS (23)
  1. ORENCIA [Suspect]
     Active Substance: ABATACEPT
     Indication: Rheumatoid arthritis
     Route: 058
     Dates: start: 201701
  2. ORENCIA [Suspect]
     Active Substance: ABATACEPT
     Route: 065
     Dates: start: 201612
  3. ORENCIA [Suspect]
     Active Substance: ABATACEPT
     Route: 065
     Dates: start: 2014
  4. COCODAMOL [Concomitant]
     Active Substance: ACETAMINOPHEN\CODEINE PHOSPHATE
     Dosage: 30MG/500MG, TWO TO BE TAKEN FOUR TIMES A DAY, 60 TABLET (1/3)
  5. NIFEDIPINE [Concomitant]
     Active Substance: NIFEDIPINE
     Dosage: TWO TO BE TAKEN DAILY 56 TABLET (1/3)
  6. DOCUSATE [Concomitant]
     Active Substance: DOCUSATE
     Dosage: TAKE TWO CAPSULES TWICE DAILY, AS NECESSARY, 60 CAPSULES
  7. INVITA D3 [Concomitant]
     Dosage: 800 UNIT CAPSULE, ONE TO BE TAKEN ONCE DAILY, 28 CAPSULE (2/6)
  8. GLANDOSANE [CALCIUM CHLORIDE;CARMELLOSE SODIUM;MAGNESIUM CHLORIDE;POTA [Concomitant]
     Dosage: SYNTHETIC SALIVA SPRAY LEMON (FRESENIUS KABI LTD) - TO BE USED WHEN REQUIRED, 50 ML (3/3)
  9. METOCLOPRAMIDE [Concomitant]
     Active Substance: METOCLOPRAMIDE
     Indication: Nausea
     Dosage: ONE TO BE TAKEN THREE TIMES A DAY TO PREVENT NAUSEA AND VOMITING, 21 TABLET (1/2)
  10. METOCLOPRAMIDE [Concomitant]
     Active Substance: METOCLOPRAMIDE
     Indication: Vomiting
  11. FEXOFENADINE [Concomitant]
     Active Substance: FEXOFENADINE HYDROCHLORIDE
     Dosage: ONE TO BE TAKEN EACH DAY, 30 TABLET (2/3)
  12. NARATRIPTAN HYDROCHLORIDE [Concomitant]
     Active Substance: NARATRIPTAN HYDROCHLORIDE
     Dosage: TO BE TAKE AS DIRECTED, MAXIMUM OF 6 PER MONTH., 6 TABLET (1/3)
  13. Hylo Night [Concomitant]
     Dosage: EYE OINTMENT PRESERVATIVE FREE (SCOPE OPHTHALMICS LTD) - AS DIRECTED, 10 GRAM (1/2)
  14. SPIRIVA RESPIMAT [Concomitant]
     Active Substance: TIOTROPIUM BROMIDE
     Dosage: 2.5MICROGRAMS/DOSE INHALATION SOLUTION CARTRIDGE WITH DEVICE (BOEHRINGER INGELHEIM LTD) - TWO PUFFS
  15. NAPROXEN [Concomitant]
     Active Substance: NAPROXEN
     Dosage: ONE TO BE TAKEN THREE TIMES A DAY, 56 TABLET (2/6)
  16. FLUTICASONE PROPIONATE [Concomitant]
     Active Substance: FLUTICASONE PROPIONATE
     Dosage: 500MICROGRAMS/D0SE I SALMETEROL 50MICROGRAMS/DOSE DRY POWDER INHALER - INHALE 1 BLISTER MICE DAILY.
  17. ALBUTEROL [Concomitant]
     Active Substance: ALBUTEROL
     Dosage: 100MICROGRAMS/DOSE BREATH ACTUATED INHALER C FREE - ONE TO PUFFS UP TO FOUR TIMES A DAY WHEN REQUIRE
  18. HYDROXYCHLOROQUINE [Concomitant]
     Active Substance: HYDROXYCHLOROQUINE
     Dosage: ONE TABLET DAILY MONDAY TO FRIDAY, 5 TABLET (213)
  19. OMEPRAZOLE [Concomitant]
     Active Substance: OMEPRAZOLE
     Dosage: 20MG GASTRO-RESISTANT CAPSULES - 2 DAILY, 14 CAPSULE (3/3)
  20. MONTELUKAST [Concomitant]
     Active Substance: MONTELUKAST SODIUM
     Dosage: ONE TO BE TAKEN AT NIGHT; 7 TABLET (2/4)
  21. MIRTAZAPINE [Concomitant]
     Active Substance: MIRTAZAPINE
     Dosage: ONE TO BE TAKEN AT NIGHT, 7 TABLET(3/3)
  22. LORAZEPAM [Concomitant]
     Active Substance: LORAZEPAM
     Dosage: ONE TO BE TAKEN AT NIGHT WHEN REQUIRED, 3 TABLET (3/3)
  23. FLUPENTIXOL [Concomitant]
     Active Substance: FLUPENTIXOL
     Dosage: THREE TO BE TAKEN TWICE A DAY, TABLET (1/3)

REACTIONS (1)
  - Hip fracture [Unknown]

NARRATIVE: CASE EVENT DATE: 20220704
